FAERS Safety Report 6355976-2 (Version None)
Quarter: 2009Q3

REPORT INFORMATION
  Report Type: 
  Country: None (occurrence: None)
  Receive Date: 20090914
  Receipt Date: 20090914
  Transmission Date: 20100115
  Serious: No
  Sender: FDA-Public Use
  Company Number: None

PATIENT
  Sex: Female
  Weight: 70.3075 kg

DRUGS (1)
  1. AMPHETAMINE SALT TABLETS 20 MG BARR LABS [Suspect]

REACTIONS (4)
  - AGITATION [None]
  - ANXIETY [None]
  - HYPERTENSION [None]
  - INSOMNIA [None]
